FAERS Safety Report 6811800-2 (Version None)
Quarter: 2010Q2

REPORT INFORMATION
  Report Type: 
  Country: None (occurrence: None)
  Receive Date: 20100628
  Receipt Date: 20100615
  Transmission Date: 20101027
  Serious: No
  Sender: FDA-Public Use
  Company Number: 010104

PATIENT
  Age: 70 Year
  Sex: Male
  Weight: 91.2 kg

DRUGS (11)
  1. PLETAL [Suspect]
     Dosage: 100 MG, BID ORAL
     Route: 048
     Dates: start: 20100515, end: 20100519
  2. ALFUZOSIN (ALFUZOSIN) [Concomitant]
  3. CODEINE SUL TAB [Concomitant]
  4. GTN (GLYCERYL TRINITRATE) [Concomitant]
  5. ISOTARD XL (ISOSORBIDE MONONITRATE) [Concomitant]
  6. LANSOPRAZOLE [Concomitant]
  7. NICORANDIL (NICORANDIL) [Concomitant]
  8. PANTOPRAZOLE SODIUM [Concomitant]
  9. ACETAMINOPHEN [Concomitant]
  10. RAMIPRIL [Concomitant]
  11. SIMVASTATIN [Concomitant]

REACTIONS (4)
  - CHEST PAIN [None]
  - HYPERHIDROSIS [None]
  - MALAISE [None]
  - PALPITATIONS [None]
